FAERS Safety Report 17870973 (Version 2)
Quarter: 2020Q4

REPORT INFORMATION
  Report Type: Spontaneous
  Country: FR (occurrence: FR)
  Receive Date: 20200608
  Receipt Date: 20201223
  Transmission Date: 20210113
  Serious: Yes (Congenital Anomaly, Other)
  Sender: FDA-Public Use
  Company Number: NVSC2020FR144812

PATIENT
  Sex: Male

DRUGS (4)
  1. LAMOTRIGINE. [Suspect]
     Active Substance: LAMOTRIGINE
     Indication: PRODUCT USED FOR UNKNOWN INDICATION
     Dosage: 200 MG, QD
     Route: 064
     Dates: start: 20091101, end: 20100708
  2. DEPAKINE CHRONO [Suspect]
     Active Substance: VALPROATE SODIUM
     Indication: PRODUCT USED FOR UNKNOWN INDICATION
     Dosage: 1250 MG, QD
     Route: 064
     Dates: start: 20091101, end: 20100708
  3. SPECIAFOLDINE [Concomitant]
     Active Substance: FOLIC ACID
     Indication: PRODUCT USED FOR UNKNOWN INDICATION
     Dosage: 5 MG (UNTIL THE END OF PREGNANCY)
     Route: 064
  4. SPECIAFOLDINE [Concomitant]
     Active Substance: FOLIC ACID
     Dosage: 10 MG (UNTIL THE END OF THE 1ST TRIMESTER)
     Route: 064

REACTIONS (30)
  - Dysmorphism [Recovered/Resolved]
  - Hypotonia [Recovering/Resolving]
  - Foot deformity [Unknown]
  - Psychomotor skills impaired [Unknown]
  - Joint laxity [Unknown]
  - Learning disability [Unknown]
  - Hypermobility syndrome [Not Recovered/Not Resolved]
  - Knee deformity [Unknown]
  - Congenital umbilical hernia [Recovered/Resolved]
  - Sleep disorder [Unknown]
  - Ear disorder [Recovered/Resolved]
  - Muscle tone disorder [Unknown]
  - Speech disorder developmental [Unknown]
  - Hypospadias [Recovering/Resolving]
  - Disturbance in attention [Unknown]
  - Nasal disorder [Recovered/Resolved]
  - Dysgraphia [Unknown]
  - Language disorder [Recovering/Resolving]
  - Visuospatial deficit [Unknown]
  - Attention deficit hyperactivity disorder [Not Recovered/Not Resolved]
  - Aggression [Not Recovered/Not Resolved]
  - Memory impairment [Unknown]
  - Anxiety [Not Recovered/Not Resolved]
  - Fatigue [Unknown]
  - Emotional disorder [Unknown]
  - Oropharyngeal discomfort [Recovered/Resolved]
  - Speech disorder developmental [Unknown]
  - Foetal exposure during pregnancy [Recovered/Resolved]
  - Behaviour disorder [Not Recovered/Not Resolved]
  - Hypoacusis [Recovered/Resolved]

NARRATIVE: CASE EVENT DATE: 20100709
